FAERS Safety Report 8212061-2 (Version None)
Quarter: 2012Q1

REPORT INFORMATION
  Report Type: 
  Country: None (occurrence: None)
  Receive Date: 20120315
  Receipt Date: 20120306
  Transmission Date: 20120608
  Serious: Yes (Other)
  Sender: FDA-Public Use
  Company Number: PHHY2011BR93762

PATIENT
  Sex: Male

DRUGS (1)
  1. EXELON [Suspect]
     Indication: MEMORY IMPAIRMENT
     Dosage: 9.5MG\24H (18MG/10CM2)
     Route: 062
     Dates: start: 20110701

REACTIONS (9)
  - HYPERSENSITIVITY [None]
  - APPLICATION SITE PAIN [None]
  - APPLICATION SITE ERYTHEMA [None]
  - APPLICATION SITE RASH [None]
  - MEASLES [None]
  - APPLICATION SITE PRURITUS [None]
  - ERYTHEMA [None]
  - APPLICATION SITE HYPERSENSITIVITY [None]
  - DRUG INEFFECTIVE [None]
